FAERS Safety Report 6315368-9 (Version None)
Quarter: 2009Q3

REPORT INFORMATION
  Report Type: 
  Country: None (occurrence: None)
  Receive Date: 20090819
  Receipt Date: 20090817
  Transmission Date: 20100115
  Serious: Yes (Hospitalization)
  Sender: FDA-Public Use
  Company Number: SE-WYE-G04267209

PATIENT
  Age: 73 Year
  Sex: Male

DRUGS (12)
  1. TAZOCIN [Suspect]
     Indication: DIABETIC ULCER
     Route: 042
     Dates: start: 20090319, end: 20090322
  2. INSULATARD [Concomitant]
  3. ATACAND HCT [Concomitant]
  4. GLUCOPHAGE [Concomitant]
  5. LEVOTHYROXINE SODIUM [Concomitant]
  6. SELOKEN [Concomitant]
  7. LASIX [Concomitant]
     Dosage: 30 MG
  8. DAONIL [Concomitant]
     Dosage: 3.5
  9. ASPIRIN [Concomitant]
  10. NOVORAPID [Concomitant]
  11. TIENAM [Suspect]
     Indication: DIABETIC ULCER
     Dosage: UNKNOWN
     Route: 042
     Dates: start: 20090322, end: 20090322
  12. THACAPZOL [Concomitant]
     Dosage: 5 MG

REACTIONS (3)
  - DIARRHOEA [None]
  - ENCEPHALOPATHY [None]
  - VOMITING [None]
